FAERS Safety Report 4724760-5 (Version None)
Quarter: 2005Q3

REPORT INFORMATION
  Report Type: 
  Country: None (occurrence: None)
  Receive Date: 20050726
  Receipt Date: 20050503
  Transmission Date: 20060218
  Serious: Yes (Hospitalization)
  Sender: FDA-Public Use
  Company Number: 399308

PATIENT
  Age: 86 Year
  Sex: Male

DRUGS (4)
  1. CARVEDILOL [Suspect]
     Dosage: 12.5MG TWICE PER DAY
     Route: 048
     Dates: start: 20050215
  2. DIGOXIN [Suspect]
     Indication: ATRIAL FIBRILLATION
     Dosage: 125MG PER DAY
     Dates: start: 20040615
  3. SPIRONOLACTONE [Suspect]
     Dosage: 125MG TWICE PER DAY
     Dates: start: 20040615
  4. RAMIPRIL [Suspect]
     Dosage: 10MG PER DAY
     Route: 065
     Dates: start: 20040615

REACTIONS (8)
  - ANXIETY [None]
  - BALANCE DISORDER [None]
  - CEREBROVASCULAR ACCIDENT [None]
  - DEPRESSED LEVEL OF CONSCIOUSNESS [None]
  - DIZZINESS [None]
  - MEMORY IMPAIRMENT [None]
  - NAUSEA [None]
  - VISION BLURRED [None]
